FAERS Safety Report 9088619 (Version 1)
Quarter: 2013Q1

REPORT INFORMATION
  Report Type: Report from Study
  Country: US (occurrence: US)
  Receive Date: 20130130
  Receipt Date: 20130130
  Transmission Date: 20140127
  Serious: No
  Sender: FDA-Public Use
  Company Number: US-ABBOTT-12P-163-0976764-00

PATIENT
  Age: 47 None
  Sex: Female

DRUGS (6)
  1. HUMIRA [Suspect]
     Indication: PSORIASIS
     Route: 058
     Dates: start: 20120504
  2. SYNTHROID [Concomitant]
     Indication: HYPOTENSION
  3. LOSARTAN [Concomitant]
     Indication: HYPERTENSION
  4. PROZAC [Concomitant]
     Indication: DEPRESSION
  5. WELLBUTRIN XL [Concomitant]
     Indication: DEPRESSION
  6. ALBUTEROL [Concomitant]
     Indication: ASTHMA

REACTIONS (4)
  - Dizziness [Recovered/Resolved]
  - Psoriasis [Not Recovered/Not Resolved]
  - Psoriasis [Not Recovered/Not Resolved]
  - Dizziness [Recovered/Resolved]
